FAERS Safety Report 19418590 (Version 1)
Quarter: 2021Q2

REPORT INFORMATION
  Report Type: Spontaneous
  Country: FR (occurrence: FR)
  Receive Date: 20210615
  Receipt Date: 20210615
  Transmission Date: 20210717
  Serious: Yes (Other)
  Sender: FDA-Public Use
  Company Number: NVSC2021FR128009

PATIENT
  Age: 22 Year
  Sex: Male

DRUGS (2)
  1. ALCOOL [Suspect]
     Active Substance: ALCOHOL
     Indication: PRODUCT USED FOR UNKNOWN INDICATION
     Dosage: UNK (1 BOUTEILLE DE RHUM TOUS LES 2 JOURS 3 4 BIERES DE 50 CC A 7? DEPUIS PLUSIEURS ANNEES)
     Route: 048
  2. ALPRAZOLAM. [Suspect]
     Active Substance: ALPRAZOLAM
     Indication: PRODUCT USED FOR UNKNOWN INDICATION
     Dosage: UNK (JUSQU A 5 COMPRIMES PAR JOUR DE PUIS QUELQUES SEMAINES)
     Route: 048

REACTIONS (1)
  - Drug use disorder [Not Recovered/Not Resolved]
